FAERS Safety Report 24033445 (Version 1)
Quarter: 2024Q3

REPORT INFORMATION
  Report Type: Spontaneous
  Country: GB (occurrence: GB)
  Receive Date: 20240701
  Receipt Date: 20240701
  Transmission Date: 20241016
  Serious: Yes (Other)
  Sender: ABBVIE
  Company Number: GB-MHRA-TPP11155958C2182674YC1719569994210

PATIENT
  Age: 36 Year
  Sex: Female
  Weight: 106 kg

DRUGS (15)
  1. ADALIMUMAB [Suspect]
     Active Substance: ADALIMUMAB\ISOPROPYL ALCOHOL
     Indication: Ill-defined disorder
     Route: 058
     Dates: start: 20240628
  2. COLESEVELAM HYDROCHLORIDE [Concomitant]
     Active Substance: COLESEVELAM HYDROCHLORIDE
     Indication: Ill-defined disorder
     Dosage: TAKE ONE THREE TIMES A DAY
     Dates: start: 20230417
  3. CANDESARTAN [Concomitant]
     Active Substance: CANDESARTAN
     Indication: Ill-defined disorder
     Dosage: TAKE ONE ONCE DAILY
     Dates: start: 20231108, end: 20240520
  4. AMLODIPINE [Concomitant]
     Active Substance: AMLODIPINE BESYLATE
     Indication: Ill-defined disorder
     Dosage: TAKE TWO DAILY
     Dates: start: 20240306
  5. MERCAPTOPURINE [Concomitant]
     Active Substance: MERCAPTOPURINE
     Indication: Ill-defined disorder
     Dosage: 1/2 A TABLET ONCE A DAY
     Dates: start: 20230417
  6. DERMOL [Concomitant]
     Active Substance: BENZALKONIUM CHLORIDE\CHLORHEXIDINE HYDROCHLORIDE\ISOPROPYL MYRISTATE\PARAFFIN
     Indication: Ill-defined disorder
     Dosage: USE AS A WASH
     Dates: start: 20230417
  7. AZELAIC ACID [Concomitant]
     Active Substance: AZELAIC ACID
     Indication: Ill-defined disorder
     Dosage: USE AS AGREED WITH DERMATOLOGIST
     Dates: start: 20231105
  8. EPIDUO [Concomitant]
     Active Substance: ADAPALENE\BENZOYL PEROXIDE
     Indication: Ill-defined disorder
     Dosage: APPLY THINLY ONCE DAILY IN THE EVENING.
     Dates: start: 20230417
  9. ALLOPURINOL [Concomitant]
     Active Substance: ALLOPURINOL
     Indication: Ill-defined disorder
     Dosage: TAKE ONE DAILY
     Dates: start: 20230502
  10. ERYTHROMYCIN [Concomitant]
     Active Substance: ERYTHROMYCIN
     Indication: Ill-defined disorder
     Dosage: TAKE TWO TWICE DAILY
     Dates: start: 20230417, end: 20240628
  11. EUMOVATE [Concomitant]
     Active Substance: CLOBETASONE BUTYRATE
     Indication: Ill-defined disorder
     Dosage: ONCE DAILY FOR 4 WEEKS TO EARS
     Dates: start: 20230417
  12. DESOGESTREL [Concomitant]
     Active Substance: DESOGESTREL
     Indication: Ill-defined disorder
     Dosage: TAKE ONE TABLET ONCE A DAY, AT THE SAME TIME EA...
     Dates: start: 20240520
  13. METFORMIN [Concomitant]
     Active Substance: METFORMIN HYDROCHLORIDE
     Indication: Ill-defined disorder
     Dosage: TAKE ONE A DAY FOR 1-2 WEEKS AND THEN 2 PER DAY...
     Dates: start: 20240424
  14. IVERMECTIN [Concomitant]
     Active Substance: IVERMECTIN
     Indication: Ill-defined disorder
     Dosage: USE AS DIRECTED BY DERMATOLOGIST
     Dates: start: 20231105
  15. NORETHINDRONE [Concomitant]
     Active Substance: NORETHINDRONE
     Indication: Ill-defined disorder
     Dosage: TAKE ONE TABLET THREE TIMES A DAY, 3 DAYS BEFOR...
     Dates: start: 20240521, end: 20240628

REACTIONS (1)
  - Autoimmune hepatitis [Recovered/Resolved]

NARRATIVE: CASE EVENT DATE: 20240628
